FAERS Safety Report 24681887 (Version 1)
Quarter: 2024Q4

REPORT INFORMATION
  Report Type: Spontaneous
  Country: NL (occurrence: NL)
  Receive Date: 20241130
  Receipt Date: 20241130
  Transmission Date: 20250115
  Serious: Yes (Other)
  Sender: Unknown Manufacturer
  Company Number: None

PATIENT
  Age: 73 Year
  Sex: Male
  Weight: 72 kg

DRUGS (2)
  1. GEMCITABINE [Suspect]
     Active Substance: GEMCITABINE
     Indication: Non-small cell lung cancer
     Route: 065
     Dates: start: 20220715
  2. CISPLATIN [Suspect]
     Active Substance: CISPLATIN
     Indication: Non-small cell lung cancer
     Dosage: KUUR 2X
     Route: 065
     Dates: start: 20220715

REACTIONS (3)
  - Oesophageal hypomotility [Not Recovered/Not Resolved]
  - Balance disorder [Not Recovered/Not Resolved]
  - Deafness [Not Recovered/Not Resolved]
